FAERS Safety Report 9920990 (Version 1)
Quarter: 2014Q1

REPORT INFORMATION
  Report Type: Spontaneous
  Country: US (occurrence: US)
  Receive Date: 20140225
  Receipt Date: 20140225
  Transmission Date: 20141002
  Serious: No
  Sender: FDA-Public Use
  Company Number: US-009507513-1402USA004485

PATIENT
  Age: 39 Year
  Sex: Male

DRUGS (2)
  1. PEGINTRON [Suspect]
     Indication: CHRONIC HEPATITIS C
     Dosage: 0.5 CC, ONCE A WEEK, REDIPEN
     Route: 058
     Dates: start: 20140131
  2. REBETOL [Suspect]
     Indication: CHRONIC HEPATITIS C
     Dosage: 1200 MG, BID
     Route: 048
     Dates: start: 20140131

REACTIONS (7)
  - Pain [Unknown]
  - Dysgeusia [Unknown]
  - Fatigue [Unknown]
  - Faeces soft [Unknown]
  - Muscular weakness [Recovered/Resolved]
  - Dry skin [Recovered/Resolved]
  - Product quality issue [Unknown]
